APPROVED DRUG PRODUCT: BUPROPION HYDROCHLORIDE
Active Ingredient: BUPROPION HYDROCHLORIDE
Strength: 200MG
Dosage Form/Route: TABLET, EXTENDED RELEASE;ORAL
Application: A206674 | Product #003
Applicant: INVAGEN PHARMACEUTICALS INC
Approved: Feb 9, 2016 | RLD: No | RS: No | Type: DISCN